FAERS Safety Report 12555673 (Version 1)
Quarter: 2016Q3

REPORT INFORMATION
  Report Type: Spontaneous
  Country: US (occurrence: None)
  Receive Date: 20160713
  Receipt Date: 20160713
  Transmission Date: 20161109
  Serious: Yes (Life-Threatening)
  Sender: FDA-Public Use
  Company Number: None

PATIENT
  Age: 64 Year
  Sex: Male
  Weight: 98.43 kg

DRUGS (7)
  1. ASPIRIN. [Concomitant]
     Active Substance: ASPIRIN
  2. VITAMIN D [Concomitant]
     Active Substance: CHOLECALCIFEROL
  3. ALFUZOSIN HCL ER 10MG TABLET, 10 MG CAMBER [Suspect]
     Active Substance: ALFUZOSIN HYDROCHLORIDE
     Indication: PROSTATOMEGALY
     Route: 048
     Dates: start: 20160707, end: 20160708
  4. DIOVAN HCT [Concomitant]
     Active Substance: HYDROCHLOROTHIAZIDE\VALSARTAN
  5. TOPROL XL [Concomitant]
     Active Substance: METOPROLOL SUCCINATE
  6. WARFARIN [Concomitant]
     Active Substance: WARFARIN
  7. LIPITOR [Concomitant]
     Active Substance: ATORVASTATIN CALCIUM

REACTIONS (6)
  - Asthenia [None]
  - Blood pressure decreased [None]
  - Dizziness [None]
  - Chest pain [None]
  - Dysstasia [None]
  - Burning sensation [None]

NARRATIVE: CASE EVENT DATE: 20160708
